FAERS Safety Report 10854007 (Version 1)
Quarter: 2015Q1

REPORT INFORMATION
  Report Type: Spontaneous
  Country: US (occurrence: None)
  Receive Date: 20150218
  Receipt Date: 20150218
  Transmission Date: 20150721
  Serious: No
  Sender: FDA-Public Use
  Company Number: None

PATIENT
  Age: 36 Year
  Sex: Female
  Weight: 61.24 kg

DRUGS (1)
  1. SCOPOLAMINE 1.5 MG [Suspect]
     Active Substance: SCOPOLAMINE
     Indication: MOTION SICKNESS
     Dosage: 1 PATCH EVERY 72 HOURS  AS NEEDED APPLIED AS MEDICATED PATCH TO SKIN
     Route: 061
     Dates: start: 20150212, end: 20150213

REACTIONS (4)
  - Vision blurred [None]
  - Dizziness [None]
  - Mydriasis [None]
  - Disorientation [None]

NARRATIVE: CASE EVENT DATE: 20150213
